FAERS Safety Report 15336253 (Version 2)
Quarter: 2018Q3

REPORT INFORMATION
  Report Type: Report from Study
  Country: BE (occurrence: BE)
  Receive Date: 20180830
  Receipt Date: 20180924
  Transmission Date: 20181010
  Serious: Yes (Death, Hospitalization, Other)
  Sender: FDA-Public Use
  Company Number: BE-PFIZER INC-2018349259

PATIENT
  Age: 82 Year
  Sex: Male
  Weight: 88 kg

DRUGS (12)
  1. IRINOTECAN HCL [Suspect]
     Active Substance: IRINOTECAN HYDROCHLORIDE
     Dosage: 169 MG, EVERY 2 WEEKS
     Route: 042
     Dates: start: 20180625
  2. BEVACIZUMAB. [Suspect]
     Active Substance: BEVACIZUMAB
     Dosage: 623 MG, EVERY 2 WEEKS
     Route: 042
     Dates: start: 20180719, end: 20180805
  3. FLUOROURACIL. [Suspect]
     Active Substance: FLUOROURACIL
     Dosage: 3384 MG, EVERY 2 WEEKS
     Route: 042
     Dates: start: 20180625
  4. FLUOROURACIL. [Suspect]
     Active Substance: FLUOROURACIL
     Indication: COLORECTAL CANCER METASTATIC
     Dosage: UNK, CYCLIC, EVERY 2 WEEKS
     Route: 042
     Dates: start: 20171023
  5. IRINOTECAN HCL [Suspect]
     Active Substance: IRINOTECAN HYDROCHLORIDE
     Indication: COLORECTAL CANCER METASTATIC
     Dosage: 1 UNK, EVERY 2 WEEKS
     Route: 042
     Dates: start: 20171023
  6. IRINOTECAN HCL [Suspect]
     Active Substance: IRINOTECAN HYDROCHLORIDE
     Dosage: 179 MG, EVERY 2 WEEKS
     Route: 042
     Dates: start: 20180716
  7. BEVACIZUMAB. [Suspect]
     Active Substance: BEVACIZUMAB
     Indication: COLORECTAL CANCER METASTATIC
     Dosage: 1 UNK, EVERY 2 WEEKS
     Route: 042
     Dates: start: 20171023
  8. LEUCOVORIN. [Suspect]
     Active Substance: LEUCOVORIN
     Indication: COLORECTAL CANCER METASTATIC
     Dosage: 1 UNK, EVERY 2 WEEKS
     Route: 042
     Dates: start: 20171023
  9. BEVACIZUMAB. [Suspect]
     Active Substance: BEVACIZUMAB
     Dosage: 555 MG, EVERY 2 WEEKS
     Route: 042
     Dates: start: 20180716
  10. LEUCOVORIN. [Suspect]
     Active Substance: LEUCOVORIN
     Dosage: 3384 MG, EVERY 2 WEEKS
     Route: 042
     Dates: start: 20180625
  11. FLUOROURACIL. [Suspect]
     Active Substance: FLUOROURACIL
     Dosage: 3582 MG, CYCLIC, EVERY 2 WEEKS
     Route: 042
     Dates: start: 20180716
  12. LEUCOVORIN. [Suspect]
     Active Substance: LEUCOVORIN
     Dosage: 3582 MG, EVERY 2 WEEKS
     Route: 042
     Dates: start: 20180716

REACTIONS (13)
  - Brain injury [Fatal]
  - Device related infection [Recovering/Resolving]
  - Diarrhoea [Recovered/Resolved]
  - Endocarditis [Fatal]
  - Fall [Unknown]
  - Benign prostatic hyperplasia [Not Recovered/Not Resolved]
  - Mucosal inflammation [Not Recovered/Not Resolved]
  - Decreased appetite [Not Recovered/Not Resolved]
  - General physical health deterioration [Not Recovered/Not Resolved]
  - Back pain [Not Recovered/Not Resolved]
  - Dry mouth [Not Recovered/Not Resolved]
  - Pulmonary embolism [Recovered/Resolved]
  - Anaemia [Recovered/Resolved]

NARRATIVE: CASE EVENT DATE: 20171122
